FAERS Safety Report 7573991-8 (Version None)
Quarter: 2011Q2

REPORT INFORMATION
  Report Type: 
  Country: None (occurrence: None)
  Receive Date: 20110627
  Receipt Date: 20110616
  Transmission Date: 20111010
  Serious: Yes (Other)
  Sender: FDA-Public Use
  Company Number: BR-JNJFOC-20110608269

PATIENT
  Sex: Male

DRUGS (6)
  1. PREZISTA [Suspect]
     Indication: HIV INFECTION
     Route: 048
     Dates: start: 20100401
  2. LAMIVUDINE [Concomitant]
     Indication: HIV INFECTION
     Route: 065
     Dates: start: 20100101
  3. RITONAVIR [Concomitant]
     Indication: HIV INFECTION
     Route: 065
     Dates: start: 20100101
  4. RALTEGRAVIR [Concomitant]
     Indication: HIV INFECTION
     Route: 065
     Dates: start: 20100101
  5. TENOFOVIR DISOPROXIL FUMARATE [Concomitant]
     Indication: HIV INFECTION
     Route: 065
     Dates: start: 20100101
  6. INTELENCE [Suspect]
     Indication: HIV INFECTION
     Route: 048
     Dates: start: 20100401

REACTIONS (3)
  - MYOCARDIAL INFARCTION [None]
  - ELECTROCARDIOGRAM CHANGE [None]
  - CHEST PAIN [None]
